FAERS Safety Report 15230996 (Version 2)
Quarter: 2019Q3

REPORT INFORMATION
  Report Type: Spontaneous
  Country: US (occurrence: US)
  Receive Date: 20180802
  Receipt Date: 20190805
  Transmission Date: 20191004
  Serious: Yes (Other)
  Sender: FDA-Public Use
  Company Number: US-ACCORD-064092

PATIENT
  Age: 50 Year
  Sex: Female
  Weight: 65.77 kg

DRUGS (31)
  1. TRASTUZUMAB. [Suspect]
     Active Substance: TRASTUZUMAB
     Indication: BREAST CANCER
     Dosage: NO OF CYCLE: 03
     Dates: start: 20110523, end: 20110708
  2. PARAPLATIN [Suspect]
     Active Substance: CARBOPLATIN
     Indication: BREAST CANCER
     Dosage: NO OF CYCLE: 03
     Dates: start: 20110523, end: 20110708
  3. AMOXICILLIN SODIUM/CLAVULANATE POTASSIUM [Concomitant]
     Dates: start: 201101
  4. CITALOPRAM [Concomitant]
     Active Substance: CITALOPRAM HYDROBROMIDE
     Dates: start: 200705, end: 201109
  5. XOPENEX HFA INH [Concomitant]
     Dates: start: 200809
  6. PREDNISONE. [Concomitant]
     Active Substance: PREDNISONE
     Dates: start: 200809
  7. DOXYCYCLINE. [Concomitant]
     Active Substance: DOXYCYCLINE
     Dates: start: 200901
  8. PROCHLORPERAZINE. [Concomitant]
     Active Substance: PROCHLORPERAZINE
  9. FLUCONAZOLE. [Concomitant]
     Active Substance: FLUCONAZOLE
  10. TAXOL [Suspect]
     Active Substance: PACLITAXEL
     Indication: BREAST CANCER
     Dosage: NO OF CYCLE: 03
     Dates: start: 20110523, end: 20110708
  11. GENTAMICIN. [Concomitant]
     Active Substance: GENTAMICIN
     Dates: start: 200907
  12. DOCETAXEL ACCORD [Suspect]
     Active Substance: DOCETAXEL
     Indication: BREAST CANCER
     Dosage: NO OF CYCLE: 03
     Dates: start: 20110523, end: 20110708
  13. BIOTIN [Concomitant]
     Active Substance: BIOTIN
  14. SULFACETAMIDE/SULFACETAMIDE SODIUM [Concomitant]
  15. LOTEPREDNOL [Concomitant]
     Active Substance: LOTEPREDNOL
     Dates: start: 200908
  16. PARACETAMOL [Concomitant]
     Active Substance: ACETAMINOPHEN
  17. CHANTIX [Concomitant]
     Active Substance: VARENICLINE TARTRATE
     Dates: start: 201102
  18. PHENTERMINE/PHENTERMINE HYDROCHLORIDE/PHENTERMINE RESIN [Concomitant]
     Dates: start: 200710
  19. DOCUSATE/DOCUSATE CALCIUM/DOCUSATE POTASSIUM/DOCUSATE SODIUM [Concomitant]
     Dates: start: 201104
  20. AMOXICILLIN/AMOXICILLIN SODIUM/AMOXICILLIN TRIHYDRATE [Concomitant]
     Dates: start: 201005
  21. METHYLPREDNISOLONE. [Concomitant]
     Active Substance: METHYLPREDNISOLONE
     Dates: start: 200901
  22. DIPHENHYDRAMINE. [Concomitant]
     Active Substance: DIPHENHYDRAMINE
  23. TOBRAMYCIN/TOBRAMYCIN SULFATE [Concomitant]
     Dates: start: 201101
  24. IBUPROFEN. [Concomitant]
     Active Substance: IBUPROFEN
     Dates: start: 201005
  25. CEFUROXIME. [Concomitant]
     Active Substance: CEFUROXIME
     Dates: end: 200809
  26. DICYCLOVERINE [Concomitant]
     Active Substance: DICYCLOMINE HYDROCHLORIDE
     Dates: start: 200810
  27. PHENDIMETRAZINE. [Concomitant]
     Active Substance: PHENDIMETRAZINE TARTRATE
     Dates: start: 200904
  28. MOMETASONE [Concomitant]
     Active Substance: MOMETASONE
     Dates: start: 200912
  29. DIHYDROCODEINE/PARACETAMOL [Concomitant]
     Dates: start: 201003
  30. ADVAIR DISKUS [Concomitant]
     Active Substance: FLUTICASONE PROPIONATE\SALMETEROL XINAFOATE
     Dates: start: 200901
  31. GRANISETRON [Concomitant]
     Active Substance: GRANISETRON

REACTIONS (1)
  - Alopecia [Not Recovered/Not Resolved]
